FAERS Safety Report 6121255-1 (Version None)
Quarter: 2009Q1

REPORT INFORMATION
  Report Type: 
  Country: None (occurrence: None)
  Receive Date: 20090317
  Receipt Date: 20090309
  Transmission Date: 20090719
  Serious: Yes (Other)
  Sender: FDA-Public Use
  Company Number: US-ELI_LILLY_AND_COMPANY-US200903002706

PATIENT
  Sex: Female

DRUGS (4)
  1. HUMALOG [Suspect]
     Indication: DIABETES MELLITUS
     Route: 058
  2. ILETIN [Suspect]
     Indication: DIABETES MELLITUS
  3. ILETIN [Suspect]
  4. LANTUS [Concomitant]

REACTIONS (10)
  - DRUG EXPOSURE DURING PREGNANCY [None]
  - FEMALE REPRODUCTIVE NEOPLASM [None]
  - FRACTURE [None]
  - LIPODYSTROPHY ACQUIRED [None]
  - NAUSEA [None]
  - NERVOUSNESS [None]
  - PRURITUS [None]
  - RASH [None]
  - RETINOPATHY [None]
  - TRIGGER FINGER [None]
